FAERS Safety Report 26192434 (Version 2)
Quarter: 2025Q4

REPORT INFORMATION
  Report Type: Spontaneous
  Country: US (occurrence: US)
  Receive Date: 20251223
  Receipt Date: 20251230
  Transmission Date: 20260117
  Serious: Yes (Hospitalization, Other)
  Sender: BRISTOL-MYERS SQUIBB COMPANY
  Company Number: US-BRISTOL-MYERS SQUIBB COMPANY-2025-170951

PATIENT
  Age: 85 Year
  Sex: Male

DRUGS (1)
  1. POMALYST [Suspect]
     Active Substance: POMALIDOMIDE
     Indication: Plasma cell myeloma
     Dosage: 1 TIME A DAY
     Route: 048
     Dates: start: 202402

REACTIONS (8)
  - Gait disturbance [Unknown]
  - Pneumonia [Unknown]
  - Balance disorder [Unknown]
  - Decreased immune responsiveness [Unknown]
  - COVID-19 [Unknown]
  - Localised infection [Unknown]
  - Fall [Unknown]
  - Asthenia [Unknown]

NARRATIVE: CASE EVENT DATE: 20251201
